FAERS Safety Report 5511307-9 (Version None)
Quarter: 2007Q4

REPORT INFORMATION
  Report Type: 
  Country: None (occurrence: None)
  Receive Date: 20071109
  Receipt Date: 20070914
  Transmission Date: 20080405
  Serious: No
  Sender: FDA-Public Use
  Company Number: A0669827A

PATIENT
  Age: 59 Year
  Sex: Male

DRUGS (3)
  1. ALTABAX [Suspect]
     Dosage: 1APP TWICE PER DAY
     Route: 061
     Dates: start: 20070813
  2. LIPITOR [Concomitant]
  3. FLOMAX [Concomitant]

REACTIONS (1)
  - APPLICATION SITE IRRITATION [None]
